FAERS Safety Report 14421308 (Version 3)
Quarter: 2018Q2

REPORT INFORMATION
  Report Type: Report from Study
  Country: ES (occurrence: ES)
  Receive Date: 20180122
  Receipt Date: 20180425
  Transmission Date: 20180711
  Serious: Yes (Other)
  Sender: FDA-Public Use
  Company Number: ES-ELI_LILLY_AND_COMPANY-ES201712000999

PATIENT
  Sex: Female
  Weight: 113 kg

DRUGS (20)
  1. VALSARTAN. [Concomitant]
     Active Substance: VALSARTAN
     Indication: HYPERTENSION
     Dosage: 160 MG, EACH MORNING
     Route: 065
     Dates: start: 2014
  2. HUMALOG [Suspect]
     Active Substance: INSULIN LISPRO
     Dosage: 50 IU, EACH MORNING AND EACH NIGHT
     Route: 058
  3. MORFINA                            /00036301/ [Concomitant]
     Active Substance: MORPHINE
     Indication: PAIN
     Dosage: 50 MG EVERY 72H
     Route: 065
     Dates: start: 201709
  4. DEFLAZACORT [Concomitant]
     Active Substance: DEFLAZACORT
     Indication: PAIN
     Dosage: 0.25 DF, QOD
     Route: 065
  5. FUROSEMIDA                         /00032601/ [Concomitant]
     Active Substance: FUROSEMIDE
     Indication: POLYURIA
     Dosage: 40 MG, DAILY
     Route: 065
     Dates: start: 2014
  6. APO LORAZEPAM [Concomitant]
     Active Substance: LORAZEPAM
     Indication: SLEEP DISORDER
     Dosage: 1 MG, DAILY
     Route: 065
     Dates: start: 2015
  7. DELTIUS [Concomitant]
     Active Substance: CHOLECALCIFEROL
     Indication: PRODUCT USED FOR UNKNOWN INDICATION
     Dosage: 2.5 ML, DAILY
     Route: 065
     Dates: start: 201706
  8. INSULIN GLARGINE [Suspect]
     Active Substance: INSULIN GLARGINE
     Indication: TYPE 2 DIABETES MELLITUS
     Dosage: 46 IU-50 IU, EACH MORNING
     Route: 058
     Dates: start: 2016
  9. AMLODIPINO                         /00972401/ [Concomitant]
     Active Substance: AMLODIPINE BESYLATE
     Indication: HYPERTENSION
     Dosage: UNK, DAILY
     Route: 065
     Dates: start: 2016
  10. INEGY [Concomitant]
     Active Substance: EZETIMIBE\SIMVASTATIN
     Indication: BLOOD CHOLESTEROL ABNORMAL
     Dosage: 10 MG, DAILY
     Route: 065
     Dates: start: 2014
  11. RUPAFIN [Concomitant]
     Active Substance: RUPATADINE FUMARATE
     Indication: PRURITUS GENERALISED
     Dosage: 10 MG, DAILY
     Route: 065
     Dates: start: 2015
  12. BYDUREON [Concomitant]
     Active Substance: EXENATIDE
     Indication: TYPE 2 DIABETES MELLITUS
     Dosage: 20 MG, WEEKLY (1/W)
     Route: 065
     Dates: start: 201708
  13. ASPIRINA [Concomitant]
     Active Substance: ASPIRIN
     Indication: PRODUCT USED FOR UNKNOWN INDICATION
     Dosage: 100 MG, DAILY
     Route: 065
     Dates: start: 2013
  14. ARAVA [Concomitant]
     Active Substance: LEFLUNOMIDE
     Indication: PAIN
     Dosage: 20 MG, UNKNOWN
     Route: 065
     Dates: start: 2010
  15. LIRICA [Concomitant]
     Active Substance: PREGABALIN
     Indication: PAIN
     Dosage: 75 MG, BID
     Route: 065
     Dates: start: 2014
  16. INSULIN GLARGINE [Suspect]
     Active Substance: INSULIN GLARGINE
     Dosage: 20 IU-30IU, DAILY
     Route: 058
     Dates: start: 2016, end: 201801
  17. HUMALOG [Suspect]
     Active Substance: INSULIN LISPRO
     Indication: TYPE 2 DIABETES MELLITUS
     Dosage: 30 IU, PRN
     Route: 058
     Dates: start: 2011
  18. HEMOVAS [Concomitant]
     Indication: CARDIOVASCULAR DISORDER
     Dosage: 40 MG, BID
     Route: 065
  19. HEMOVAS [Concomitant]
     Indication: PERIPHERAL VASCULAR DISORDER
  20. TRAJENTA [Suspect]
     Active Substance: LINAGLIPTIN
     Indication: TYPE 2 DIABETES MELLITUS
     Dosage: 5 MG, EACH MORNING
     Route: 065
     Dates: start: 2014

REACTIONS (2)
  - Blood glucose decreased [Not Recovered/Not Resolved]
  - Swelling [Not Recovered/Not Resolved]
